FAERS Safety Report 7798391-7 (Version None)
Quarter: 2011Q4

REPORT INFORMATION
  Report Type: 
  Country: None (occurrence: None)
  Receive Date: 20111005
  Receipt Date: 20110211
  Transmission Date: 20120403
  Serious: No
  Sender: FDA-Public Use
  Company Number: US-BAYER-2011-015104

PATIENT
  Age: 69 Year
  Sex: Male

DRUGS (6)
  1. LEVITRA [Suspect]
     Dosage: 20 MG, UNK
     Route: 048
  2. LEVITRA [Suspect]
     Dosage: 40 MG, UNK
     Route: 048
  3. ASPIRIN [Concomitant]
     Dosage: 81 MG, UNK
  4. ACID REFLUX MEDICATION [Concomitant]
  5. ANTIHYPERTENSIVES [Concomitant]
  6. LEVITRA [Suspect]
     Indication: ERECTILE DYSFUNCTION
     Dosage: 10 MG, UNK
     Route: 048
     Dates: start: 20101110

REACTIONS (1)
  - ERECTILE DYSFUNCTION [None]
